FAERS Safety Report 16965580 (Version 4)
Quarter: 2020Q1

REPORT INFORMATION
  Report Type: Spontaneous
  Country: FR (occurrence: FR)
  Receive Date: 20191028
  Receipt Date: 20200124
  Transmission Date: 20200409
  Serious: Yes (Other)
  Sender: FDA-Public Use
  Company Number: FR-PFIZER INC-2019462997

PATIENT
  Age: 49 Year
  Sex: Female

DRUGS (61)
  1. METHYLPREDNISOLONE. [Suspect]
     Active Substance: METHYLPREDNISOLONE
     Dosage: UNK, CYCLIC (REINTRODUCTION TEST)
     Dates: start: 20120301
  2. DEXAMETHASONE. [Concomitant]
     Active Substance: DEXAMETHASONE
     Indication: ADENOCARCINOMA OF COLON
     Dosage: UNK, CYCLIC (REINTRODUCTION TEST)
     Dates: start: 20110521
  3. DEXAMETHASONE. [Concomitant]
     Active Substance: DEXAMETHASONE
     Dosage: UNK, CYCLIC (4 CYCLES)
     Dates: start: 201205, end: 201206
  4. IRINOTECAN [Concomitant]
     Active Substance: IRINOTECAN
     Dosage: UNK, CYCLIC (36 CYCLES)
     Dates: start: 201211, end: 201409
  5. FLUOROURACIL. [Concomitant]
     Active Substance: FLUOROURACIL
     Dosage: UNK, CYCLIC (36 CYCLES)
     Dates: start: 201211, end: 201409
  6. CALCIUM FOLINATE [Suspect]
     Active Substance: LEUCOVORIN CALCIUM
     Dosage: UNK, CYCLIC (4 CYCLES)
     Dates: start: 201205, end: 201206
  7. CALCIUM FOLINATE [Suspect]
     Active Substance: LEUCOVORIN CALCIUM
     Dosage: UNK, CYCLIC (36 CYCLES)
     Dates: start: 201211, end: 201409
  8. METHYLPREDNISOLONE. [Suspect]
     Active Substance: METHYLPREDNISOLONE
     Indication: ADENOCARCINOMA OF COLON
     Dosage: UNK, CYCLIC
     Dates: start: 20110207
  9. METHYLPREDNISOLONE. [Suspect]
     Active Substance: METHYLPREDNISOLONE
     Dosage: UNK, CYCLIC (REINTRODUCTION TEST)
     Dates: start: 20110521
  10. IRINOTECAN [Concomitant]
     Active Substance: IRINOTECAN
     Dosage: UNK, CYCLIC
     Dates: start: 20111108
  11. FLUOROURACIL. [Concomitant]
     Active Substance: FLUOROURACIL
     Indication: ADENOCARCINOMA OF COLON
     Dosage: UNK, CYCLIC
     Dates: start: 20110207
  12. FLUOROURACIL. [Concomitant]
     Active Substance: FLUOROURACIL
     Dosage: UNK, CYCLIC
     Dates: start: 20110301
  13. FLUOROURACIL. [Concomitant]
     Active Substance: FLUOROURACIL
     Dosage: UNK, CYCLIC (4 CYCLES)
     Dates: start: 201205, end: 201206
  14. FLUOROURACIL. [Concomitant]
     Active Substance: FLUOROURACIL
     Dosage: UNK, CYCLIC
     Dates: start: 20150316
  15. METHYLPREDNISOLONE. [Suspect]
     Active Substance: METHYLPREDNISOLONE
     Dosage: UNK, CYCLIC
     Dates: start: 20120501
  16. OXALIPLATIN. [Suspect]
     Active Substance: OXALIPLATIN
     Dosage: UNK, CYCLIC
     Dates: start: 20150330
  17. DEXAMETHASONE. [Concomitant]
     Active Substance: DEXAMETHASONE
     Dosage: UNK, CYCLIC
     Dates: start: 20110608
  18. IRINOTECAN [Concomitant]
     Active Substance: IRINOTECAN
     Indication: ADENOCARCINOMA OF COLON
     Dosage: UNK, CYCLIC
     Dates: start: 20110301
  19. FLUOROURACIL. [Concomitant]
     Active Substance: FLUOROURACIL
     Dosage: UNK, CYCLIC (3 CYCLES)
     Dates: start: 20120317, end: 20120416
  20. BEVACIZUMAB. [Concomitant]
     Active Substance: BEVACIZUMAB
     Indication: ADENOCARCINOMA OF COLON
     Dosage: UNK
  21. CALCIUM FOLINATE [Suspect]
     Active Substance: LEUCOVORIN CALCIUM
     Dosage: UNK, CYCLIC
     Dates: start: 20110301
  22. CALCIUM FOLINATE [Suspect]
     Active Substance: LEUCOVORIN CALCIUM
     Dosage: UNK, CYCLIC
     Dates: start: 20151021
  23. METHYLPREDNISOLONE. [Suspect]
     Active Substance: METHYLPREDNISOLONE
     Dosage: UNK, CYCLIC
     Dates: start: 20110301
  24. METHYLPREDNISOLONE. [Suspect]
     Active Substance: METHYLPREDNISOLONE
     Dosage: UNK, CYCLIC
     Dates: start: 20111108
  25. OXALIPLATIN. [Suspect]
     Active Substance: OXALIPLATIN
     Dosage: UNK, CYCLIC
     Dates: start: 20110608
  26. FLUOROURACIL. [Concomitant]
     Active Substance: FLUOROURACIL
     Dosage: UNK, CYCLIC (6 CYCLES)
     Dates: start: 20110623, end: 20111025
  27. FLUOROURACIL. [Concomitant]
     Active Substance: FLUOROURACIL
     Dosage: UNK, CYCLIC
     Dates: start: 20120501
  28. CALCIUM FOLINATE [Suspect]
     Active Substance: LEUCOVORIN CALCIUM
     Dosage: UNK, CYCLIC
     Dates: start: 20111108
  29. CALCIUM FOLINATE [Suspect]
     Active Substance: LEUCOVORIN CALCIUM
     Dosage: UNK, CYCLIC (4 CYCLES)
     Dates: start: 201507, end: 201509
  30. DEXAMETHASONE. [Concomitant]
     Active Substance: DEXAMETHASONE
     Dosage: UNK, CYCLIC
     Dates: start: 20150316
  31. DEXAMETHASONE. [Concomitant]
     Active Substance: DEXAMETHASONE
     Dosage: UNK, CYCLIC (4 CYCLES)
     Dates: start: 201507, end: 201509
  32. ONDANSETRON HYDROCHLORIDE. [Concomitant]
     Active Substance: ONDANSETRON HYDROCHLORIDE
     Indication: ADENOCARCINOMA OF COLON
     Dosage: UNK, CYCLIC
     Dates: start: 20110207
  33. IRINOTECAN [Concomitant]
     Active Substance: IRINOTECAN
     Dosage: UNK, CYCLIC (6 CYCLES)
     Dates: start: 20110623, end: 20111025
  34. IRINOTECAN [Concomitant]
     Active Substance: IRINOTECAN
     Dosage: UNK, CYCLIC (3 CYCLES)
     Dates: start: 20120317, end: 20120416
  35. CALCIUM FOLINATE [Suspect]
     Active Substance: LEUCOVORIN CALCIUM
     Indication: ADENOCARCINOMA OF COLON
     Dosage: UNK, CYCLIC
     Dates: start: 20110207
  36. CALCIUM FOLINATE [Suspect]
     Active Substance: LEUCOVORIN CALCIUM
     Dosage: UNK, CYCLIC (HALF DOSES)
     Dates: start: 20120501
  37. DEXAMETHASONE. [Concomitant]
     Active Substance: DEXAMETHASONE
     Dosage: UNK, CYCLIC
     Dates: start: 20151021
  38. ONDANSETRON HYDROCHLORIDE. [Concomitant]
     Active Substance: ONDANSETRON HYDROCHLORIDE
     Dosage: UNK, CYCLIC
     Dates: start: 20110301
  39. IRINOTECAN [Concomitant]
     Active Substance: IRINOTECAN
     Dosage: UNK, CYCLIC (REINTRODUCTION TEST)
     Dates: start: 20120301
  40. IRINOTECAN [Concomitant]
     Active Substance: IRINOTECAN
     Dosage: UNK, CYCLIC (4 CYCLES)
     Dates: start: 201507, end: 201509
  41. FLUOROURACIL. [Concomitant]
     Active Substance: FLUOROURACIL
     Dosage: UNK, CYCLIC (4 CYCLES)
     Dates: start: 201507, end: 201509
  42. CALCIUM FOLINATE [Suspect]
     Active Substance: LEUCOVORIN CALCIUM
     Dosage: UNK, CYCLIC (REINTRODUCTION TEST)
     Dates: start: 20110521
  43. CALCIUM FOLINATE [Suspect]
     Active Substance: LEUCOVORIN CALCIUM
     Dosage: UNK, CYCLIC (6 CYCLES)
     Dates: start: 20110623, end: 20111025
  44. CALCIUM FOLINATE [Suspect]
     Active Substance: LEUCOVORIN CALCIUM
     Dosage: UNK, CYCLIC (REINTRODUCTION TEST)
     Dates: start: 20120301
  45. CALCIUM FOLINATE [Suspect]
     Active Substance: LEUCOVORIN CALCIUM
     Dosage: UNK, CYCLIC (HALF DOSES) (3 CYCLES)
     Dates: start: 20120317, end: 20120416
  46. CALCIUM FOLINATE [Suspect]
     Active Substance: LEUCOVORIN CALCIUM
     Dosage: UNK, CYCLIC
     Dates: start: 20150316
  47. METHYLPREDNISOLONE. [Suspect]
     Active Substance: METHYLPREDNISOLONE
     Dosage: UNK, CYCLIC (6 CYCLES)
     Dates: start: 20110623, end: 20111025
  48. OXALIPLATIN. [Suspect]
     Active Substance: OXALIPLATIN
     Indication: ADENOCARCINOMA OF COLON
     Dosage: UNK, CYCLIC
     Dates: start: 20110207
  49. OXALIPLATIN. [Suspect]
     Active Substance: OXALIPLATIN
     Dosage: UNK, CYCLIC
     Dates: start: 20150316
  50. DEXAMETHASONE. [Concomitant]
     Active Substance: DEXAMETHASONE
     Dosage: UNK, CYCLIC
     Dates: start: 20150330
  51. ONDANSETRON HYDROCHLORIDE. [Concomitant]
     Active Substance: ONDANSETRON HYDROCHLORIDE
     Dosage: UNK, CYCLIC
     Dates: start: 20110608
  52. ONDANSETRON HYDROCHLORIDE. [Concomitant]
     Active Substance: ONDANSETRON HYDROCHLORIDE
     Dosage: UNK, CYCLIC (6 CYCLES)
     Dates: start: 20110623, end: 20111025
  53. ONDANSETRON HYDROCHLORIDE. [Concomitant]
     Active Substance: ONDANSETRON HYDROCHLORIDE
     Dosage: UNK, CYCLIC
     Dates: start: 20111108
  54. IRINOTECAN [Concomitant]
     Active Substance: IRINOTECAN
     Dosage: UNK, CYCLIC
     Dates: start: 20120501
  55. FLUOROURACIL. [Concomitant]
     Active Substance: FLUOROURACIL
     Dosage: UNK, CYCLIC
     Dates: start: 20111108
  56. FLUOROURACIL. [Concomitant]
     Active Substance: FLUOROURACIL
     Dosage: UNK, CYCLIC
     Dates: start: 20151021
  57. METHYLPREDNISOLONE. [Suspect]
     Active Substance: METHYLPREDNISOLONE
     Dosage: UNK, CYCLIC (3 CYCLES)
     Dates: start: 20120317, end: 20120416
  58. OXALIPLATIN. [Suspect]
     Active Substance: OXALIPLATIN
     Dosage: UNK, CYCLIC
     Dates: start: 20151021
  59. DEXAMETHASONE. [Concomitant]
     Active Substance: DEXAMETHASONE
     Dosage: UNK, CYCLIC (36 CYCLES)
     Dates: start: 201211, end: 201409
  60. ONDANSETRON HYDROCHLORIDE. [Concomitant]
     Active Substance: ONDANSETRON HYDROCHLORIDE
     Dosage: UNK, CYCLIC (REINTRODUCTION TEST)
     Dates: start: 20120301
  61. FLUOROURACIL. [Concomitant]
     Active Substance: FLUOROURACIL
     Dosage: UNK, CYCLIC (REINTRODUCTION TEST)
     Dates: start: 20110521

REACTIONS (1)
  - Thrombocytopenia [Unknown]

NARRATIVE: CASE EVENT DATE: 201102
